FAERS Safety Report 7065572-X (Version None)
Quarter: 2010Q4

REPORT INFORMATION
  Report Type: 
  Country: None (occurrence: None)
  Receive Date: 20101027
  Receipt Date: 20101025
  Transmission Date: 20110411
  Serious: Yes (Other)
  Sender: FDA-Public Use
  Company Number: AU-BRISTOL-MYERS SQUIBB COMPANY-15352784

PATIENT
  Age: 1 Day
  Sex: Male

DRUGS (2)
  1. ABILIFY [Suspect]
     Route: 064
  2. LEXAPRO [Suspect]
     Route: 064

REACTIONS (3)
  - FOETAL DISTRESS SYNDROME [None]
  - MATERNAL DRUGS AFFECTING FOETUS [None]
  - PREMATURE BABY [None]
